FAERS Safety Report 5173317-3 (Version None)
Quarter: 2006Q4

REPORT INFORMATION
  Report Type: 
  Country: None (occurrence: None)
  Receive Date: 20061206
  Receipt Date: 20061125
  Transmission Date: 20070319
  Serious: Yes (Other)
  Sender: FDA-Public Use
  Company Number: 2006091752

PATIENT
  Age: 83 Year
  Sex: Female

DRUGS (2)
  1. LIPITOR [Suspect]
     Indication: BLOOD CHOLESTEROL
     Dates: start: 19870101, end: 20020201
  2. ZETIA [Suspect]
     Indication: BLOOD CHOLESTEROL
     Dosage: (10 MG)

REACTIONS (7)
  - BLOOD CHOLESTEROL INCREASED [None]
  - BLOOD PRESSURE INCREASED [None]
  - CRYING [None]
  - FALL [None]
  - MUSCLE SPASMS [None]
  - SURGERY [None]
  - SYNCOPE [None]
